FAERS Safety Report 9003311 (Version 1)
Quarter: 2013Q1

REPORT INFORMATION
  Report Type: Spontaneous
  Country: ES (occurrence: ES)
  Receive Date: 20130108
  Receipt Date: 20130108
  Transmission Date: 20140127
  Serious: Yes (Hospitalization)
  Sender: FDA-Public Use
  Company Number: ES-ELI_LILLY_AND_COMPANY-ES201301000140

PATIENT
  Age: 74 Year
  Sex: Female

DRUGS (1)
  1. FORSTEO [Suspect]
     Dosage: UNK, UNKNOWN
     Route: 065
     Dates: end: 20111129

REACTIONS (4)
  - Cholecystitis infective [Unknown]
  - Cholelithiasis [Unknown]
  - Biliary colic [Unknown]
  - Intentional drug misuse [Not Recovered/Not Resolved]
